FAERS Safety Report 4588370-5 (Version None)
Quarter: 2005Q1

REPORT INFORMATION
  Report Type: 
  Country: None (occurrence: None)
  Receive Date: 20050222
  Receipt Date: 20050214
  Transmission Date: 20050727
  Serious: Yes (Hospitalization, Other)
  Sender: FDA-Public Use
  Company Number: FR-BRISTOL-MYERS SQUIBB COMPANY-12864252

PATIENT
  Age: 52 Year
  Sex: Female
  Weight: 70 kg

DRUGS (6)
  1. MUCOMYST [Suspect]
     Indication: RHINITIS
     Dates: start: 20050104
  2. DEXERYL [Suspect]
     Indication: PSORIASIS
     Dates: start: 20050104
  3. PIVALONE [Suspect]
     Indication: RHINITIS
     Route: 055
     Dates: start: 20050104
  4. SUDAFED 12 HOUR [Suspect]
     Indication: RHINITIS
     Dosage: 3 TABLETS (180 MG) ON 04-JAN-2005, 1 TABLET (60 MG) ON 05-JAN-2005
     Route: 048
     Dates: start: 20050104, end: 20050105
  5. DEPAMIDE [Concomitant]
     Dates: start: 20010101
  6. ATARAX [Concomitant]
     Dates: start: 20010101

REACTIONS (3)
  - HERPES ZOSTER OPHTHALMIC [None]
  - PRURITUS [None]
  - RASH ERYTHEMATOUS [None]
